FAERS Safety Report 5404436-1 (Version None)
Quarter: 2007Q3

REPORT INFORMATION
  Report Type: 
  Country: None (occurrence: None)
  Receive Date: 20070713
  Receipt Date: 20070508
  Transmission Date: 20080115
  Serious: Yes (Hospitalization)
  Sender: FDA-Public Use
  Company Number: US-JNJFOC-20061204412

PATIENT
  Age: 23 Year
  Sex: Female
  Weight: 74.8435 kg

DRUGS (4)
  1. ORTHO EVRA [Suspect]
     Indication: OVARIAN CYST
     Dosage: TRANSDERMAL
     Route: 062
     Dates: start: 20060401
  2. ORTHO EVRA [Suspect]
     Indication: TRANSDERMAL CONTRACEPTION
     Dosage: TRANSDERMAL
     Route: 062
     Dates: start: 20060401
  3. ASPIRIN [Concomitant]
  4. FLONASE [Concomitant]

REACTIONS (1)
  - PULMONARY EMBOLISM [None]
